FAERS Safety Report 22198854 (Version 1)
Quarter: 2023Q2

REPORT INFORMATION
  Report Type: Report from Study
  Country: KR (occurrence: KR)
  Receive Date: 20230411
  Receipt Date: 20230411
  Transmission Date: 20230722
  Serious: Yes (Other)
  Sender: FDA-Public Use
  Company Number: KR-SOCIETAL CDMO GAINESVILLE, LLC-SOC-2023-000017

PATIENT

DRUGS (3)
  1. VERAPAMIL HYDROCHLORIDE [Suspect]
     Active Substance: VERAPAMIL HYDROCHLORIDE
     Indication: Arterial spasm
     Dosage: 2 MILLIGRAM, UNK
     Route: 013
  2. NITROGLYCERIN [Concomitant]
     Active Substance: NITROGLYCERIN
     Indication: Arterial spasm
     Dosage: 200 MICROGRAM, UNK
     Route: 013
  3. HEPARIN [Concomitant]
     Active Substance: HEPARIN SODIUM
     Indication: Arterial spasm
     Dosage: 50?70 U/KG
     Route: 013

REACTIONS (1)
  - Haematoma [Unknown]
